FAERS Safety Report 4855457-9 (Version None)
Quarter: 2005Q4

REPORT INFORMATION
  Report Type: 
  Country: None (occurrence: None)
  Receive Date: 20051214
  Receipt Date: 20051201
  Transmission Date: 20060501
  Serious: Yes (Other)
  Sender: FDA-Public Use
  Company Number: 2005BI021771

PATIENT
  Age: 53 Year
  Sex: Female

DRUGS (1)
  1. AVONEX [Suspect]
     Indication: MULTIPLE SCLEROSIS
     Dosage: 30 UG;QW;IM
     Route: 030
     Dates: start: 20020204, end: 20041208

REACTIONS (5)
  - DEEP VEIN THROMBOSIS [None]
  - HYPOTHERMIA [None]
  - POST PROCEDURAL COMPLICATION [None]
  - RASH [None]
  - SHOCK [None]
